FAERS Safety Report 19069858 (Version 3)
Quarter: 2022Q4

REPORT INFORMATION
  Report Type: Report from Study
  Country: FR (occurrence: FR)
  Receive Date: 20210329
  Receipt Date: 20221104
  Transmission Date: 20230113
  Serious: Yes (Hospitalization, Other)
  Sender: FDA-Public Use
  Company Number: FR-TAKEDA-2021TUS019238

PATIENT
  Age: 70 Year
  Sex: Female

DRUGS (4)
  1. ICATIBANT [Suspect]
     Active Substance: ICATIBANT ACETATE
     Indication: Hereditary angioedema
     Route: 065
  2. ICATIBANT [Suspect]
     Active Substance: ICATIBANT ACETATE
     Indication: Hereditary angioedema
     Route: 065
  3. DANAZOL [Concomitant]
     Active Substance: DANAZOL
     Indication: Angioedema
     Dosage: 600 MILLIGRAM
     Route: 065
     Dates: start: 20160810, end: 201808
  4. CEFAMANDOLE [Concomitant]
     Active Substance: CEFAMANDOLE
     Indication: Antibiotic prophylaxis
     Dosage: UNK
     Route: 065
     Dates: start: 20160810, end: 201608

REACTIONS (2)
  - Invasive breast carcinoma [Recovered/Resolved]
  - Appendicitis [Recovered/Resolved]

NARRATIVE: CASE EVENT DATE: 20180119
